FAERS Safety Report 8290902 (Version 2)
Quarter: 2013Q4

REPORT INFORMATION
  Report Type: Report from Study
  Country: US (occurrence: US)
  Receive Date: 20111214
  Receipt Date: 20131125
  Transmission Date: 20140711
  Serious: Yes (Death, Hospitalization, Other)
  Sender: FDA-Public Use
  Company Number: PHEH2011US009300

PATIENT
  Age: 76 Year
  Sex: Female

DRUGS (1)
  1. TOBI [Suspect]
     Indication: BRONCHIECTASIS
     Dosage: 300MG/ 5 ML IN A CYCLE OF 28 DAYS
     Dates: start: 20111021

REACTIONS (2)
  - Death [Fatal]
  - Pneumonia [Unknown]
